FAERS Safety Report 18696629 (Version 6)
Quarter: 2023Q4

REPORT INFORMATION
  Report Type: Report from Study
  Country: US (occurrence: US)
  Receive Date: 20210104
  Receipt Date: 20231121
  Transmission Date: 20240110
  Serious: Yes (Other)
  Sender: FDA-Public Use
  Company Number: US-TAKEDA-US202032076

PATIENT
  Sex: Female

DRUGS (1)
  1. HUMAN IMMUNOGLOBULIN G [Suspect]
     Active Substance: HUMAN IMMUNOGLOBULIN G
     Indication: Immunodeficiency common variable
     Dosage: UNK
     Route: 065

REACTIONS (18)
  - Lung neoplasm malignant [Unknown]
  - Weight decreased [Unknown]
  - Weight increased [Unknown]
  - Skin disorder [Unknown]
  - Chronic fatigue syndrome [Unknown]
  - Cerebral disorder [Unknown]
  - Poor venous access [Unknown]
  - Tendonitis [Unknown]
  - Eustachian tube obstruction [Unknown]
  - Foot fracture [Unknown]
  - Cranial nerve disorder [Unknown]
  - Attention deficit hyperactivity disorder [Unknown]
  - Temporomandibular joint syndrome [Unknown]
  - Bruxism [Unknown]
  - COVID-19 [Unknown]
  - Tooth loss [Unknown]
  - Nerve injury [Unknown]
  - Visual impairment [Unknown]
